FAERS Safety Report 5570006-8 (Version None)
Quarter: 2007Q4

REPORT INFORMATION
  Report Type: 
  Country: None (occurrence: None)
  Receive Date: 20071217
  Receipt Date: 20071205
  Transmission Date: 20080405
  Serious: Yes (Other)
  Sender: FDA-Public Use
  Company Number: GXKR2007CN01171

PATIENT
  Age: 20 Year
  Sex: Male

DRUGS (8)
  1. ITRACONAZOLE [Suspect]
     Indication: PROPHYLAXIS
  2. VINDESINE(VINDESINE) [Suspect]
     Indication: ACUTE LYMPHOCYTIC LEUKAEMIA
  3. DACARBAZINE [Concomitant]
  4. CISPLATIN [Concomitant]
  5. CYCLOPHOSPHAMIDE [Concomitant]
  6. VINCRISTINE [Concomitant]
  7. ADRIAMYCIN PFS [Concomitant]
  8. DEXAMETHASONE TAB [Concomitant]

REACTIONS (4)
  - DRUG INTERACTION [None]
  - ILEUS PARALYTIC [None]
  - NEUROTOXICITY [None]
  - STEM CELL TRANSPLANT [None]
